FAERS Safety Report 5143377-4 (Version None)
Quarter: 2006Q4

REPORT INFORMATION
  Report Type: 
  Country: None (occurrence: None)
  Receive Date: 20061030
  Receipt Date: 20061018
  Transmission Date: 20070319
  Serious: Yes (Hospitalization)
  Sender: FDA-Public Use
  Company Number: 2006127511

PATIENT
  Age: 34 Year
  Sex: Female

DRUGS (1)
  1. DEPO-PROVERA [Suspect]
     Indication: CONTRACEPTION
     Dosage: 150 MG (150 MG, 1ST INJECTION, TRIMESTRAL), INTRAMUSCULAR
     Route: 030
     Dates: start: 20060218, end: 20060218

REACTIONS (4)
  - DEPRESSION [None]
  - MENTAL DISORDER [None]
  - PANIC REACTION [None]
  - SUICIDE ATTEMPT [None]
